FAERS Safety Report 5024677-5 (Version None)
Quarter: 2006Q2

REPORT INFORMATION
  Report Type: 
  Country: None (occurrence: None)
  Receive Date: 20060426
  Receipt Date: 20060308
  Transmission Date: 20061013
  Serious: Yes (Other)
  Sender: FDA-Public Use
  Company Number: 2006034451

PATIENT
  Sex: Female
  Weight: 90.7194 kg

DRUGS (31)
  1. LYRICA [Suspect]
     Indication: BACK PAIN
     Dosage: 300 MG (150 MG, 2 IN 1 D),
     Dates: start: 20060222
  2. LYRICA [Suspect]
     Indication: NEUROPATHY
     Dosage: 300 MG (150 MG, 2 IN 1 D),
     Dates: start: 20060222
  3. NAPROXEN [Suspect]
  4. LOVENOX [Concomitant]
  5. SULFAMETHOXAZOLE [Concomitant]
  6. SINGULAIR [Concomitant]
  7. LIPITOR [Concomitant]
  8. SYNTHROID [Concomitant]
  9. FUROSEMIDE [Concomitant]
  10. CELEBREX [Concomitant]
  11. PREDNISONE TAB [Concomitant]
  12. ALLEGRA [Concomitant]
  13. ALL OTHER THERAPEUTIC PRODUCTS (ALL OTHER THERAPEUTIC PRODUCTS) [Concomitant]
  14. SKELAXIN [Concomitant]
  15. EVOXAC [Concomitant]
  16. K-TAB [Concomitant]
  17. ALLOPURINOL [Concomitant]
  18. ACIPHEX [Concomitant]
  19. METHOCARBAMOL [Concomitant]
  20. QUININE SULFATE [Concomitant]
  21. SEREVENT [Concomitant]
  22. PULMICORT [Concomitant]
  23. DOVONEX (CALCIPOTRIOL) [Concomitant]
  24. IPRATROPIUM BROMIDE [Concomitant]
  25. VAGIFEM [Concomitant]
  26. CYCLOSPORINE [Concomitant]
  27. ALL OTHER THERAPEUTIC PRODUCTS (ALL OTHER THERAPEUTIC PRODUCTS) [Concomitant]
  28. FLONASE [Concomitant]
  29. MIACALCIN [Concomitant]
  30. LUNESTA [Concomitant]
  31. MISOPROSTOL [Concomitant]

REACTIONS (1)
  - CONTUSION [None]
